FAERS Safety Report 6911064-5 (Version None)
Quarter: 2010Q3

REPORT INFORMATION
  Report Type: 
  Country: None (occurrence: None)
  Receive Date: 20100806
  Receipt Date: 20100803
  Transmission Date: 20110219
  Serious: Yes (Death, Other)
  Sender: FDA-Public Use
  Company Number: CH-CELGENEUS-151-50794-10080223

PATIENT

DRUGS (1)
  1. VIDAZA [Suspect]
     Route: 058
     Dates: start: 20080901

REACTIONS (8)
  - DEATH [None]
  - DRUG TOXICITY [None]
  - DYSPNOEA [None]
  - FATIGUE [None]
  - NEUTROPENIA [None]
  - NO THERAPEUTIC RESPONSE [None]
  - RETINAL DETACHMENT [None]
  - THROMBOCYTOPENIA [None]
